FAERS Safety Report 23589433 (Version 2)
Quarter: 2024Q1

REPORT INFORMATION
  Report Type: Spontaneous
  Country: DE (occurrence: DE)
  Receive Date: 20240304
  Receipt Date: 20240323
  Transmission Date: 20240410
  Serious: Yes (Other)
  Sender: FDA-Public Use
  Company Number: DE-002147023-NVSC2024DE021868

PATIENT
  Age: 31 Year
  Sex: Female
  Weight: 50 kg

DRUGS (2)
  1. AIMOVIG [Suspect]
     Active Substance: ERENUMAB-AOOE
     Indication: Migraine prophylaxis
     Dosage: UNK, QMO, MONTHLY / EVERY 4 WEEKS
     Route: 058
     Dates: start: 201909
  2. AIMOVIG [Suspect]
     Active Substance: ERENUMAB-AOOE
     Indication: Migraine with aura
     Dosage: UNK, QMO, MONTHLY / EVERY 4 WEEKS

REACTIONS (6)
  - Lupus-like syndrome [Unknown]
  - Migraine [Recovering/Resolving]
  - COVID-19 [Recovering/Resolving]
  - Nasal inflammation [Not Recovered/Not Resolved]
  - Pharyngeal inflammation [Not Recovered/Not Resolved]
  - Histone antibody positive [Not Recovered/Not Resolved]

NARRATIVE: CASE EVENT DATE: 20210101
